FAERS Safety Report 5866203-4 (Version None)
Quarter: 2008Q3

REPORT INFORMATION
  Report Type: 
  Country: None (occurrence: None)
  Receive Date: 20080829
  Receipt Date: 20080819
  Transmission Date: 20090109
  Serious: Yes (Other)
  Sender: FDA-Public Use
  Company Number: CA-PFIZER INC-2008069394

PATIENT
  Age: 38 Year
  Sex: Female
  Weight: 55 kg

DRUGS (1)
  1. SUTENT [Suspect]
     Indication: OVARIAN EPITHELIAL CANCER
     Dosage: DAILY DOSE:37.5MG
     Route: 048

REACTIONS (1)
  - HYPOMAGNESAEMIA [None]
